FAERS Safety Report 6129064-4 (Version None)
Quarter: 2009Q1

REPORT INFORMATION
  Report Type: 
  Country: None (occurrence: None)
  Receive Date: 20090320
  Receipt Date: 20090306
  Transmission Date: 20090719
  Serious: Yes (Hospitalization, Other)
  Sender: FDA-Public Use
  Company Number: ZA-1168898

PATIENT
  Age: 71 Year
  Sex: Male

DRUGS (5)
  1. BSS [Suspect]
     Indication: CATARACT OPERATION
     Dosage: 500 ML INTRAOCULAR
     Route: 031
     Dates: start: 20090224, end: 20090224
  2. DECASONE (DEXAMETHASONE) [Concomitant]
  3. GENTAMICIN SULFATE [Concomitant]
  4. MAXITROL (MAXITROL) [Concomitant]
  5. PILOGEL (PILOCARPINE HYDROCHLORIDE) [Concomitant]

REACTIONS (1)
  - ENDOPHTHALMITIS [None]
